FAERS Safety Report 26111383 (Version 1)
Quarter: 2025Q4

REPORT INFORMATION
  Report Type: Spontaneous
  Country: TW (occurrence: TW)
  Receive Date: 20251202
  Receipt Date: 20251202
  Transmission Date: 20260118
  Serious: Yes (Other)
  Sender: ASTELLAS
  Company Number: TW-ASTELLAS-2025-AER-064985

PATIENT
  Age: 75 Year
  Sex: Male
  Weight: 58 kg

DRUGS (9)
  1. XOSPATA [Suspect]
     Active Substance: GILTERITINIB
     Indication: Chronic myelomonocytic leukaemia
     Route: 048
     Dates: start: 202308
  2. XOSPATA [Suspect]
     Active Substance: GILTERITINIB
     Indication: Acute myeloid leukaemia
     Dosage: QD (ONCE DAILY) 10DAYS
     Route: 048
     Dates: start: 20231004, end: 20231013
  3. XOSPATA [Suspect]
     Active Substance: GILTERITINIB
     Dosage: QD (ONCE DAILY) 10DAYS
     Route: 048
     Dates: start: 20231013, end: 20231025
  4. XOSPATA [Suspect]
     Active Substance: GILTERITINIB
     Dosage: QD(ONCE DAILY)
     Route: 048
     Dates: start: 20231129
  5. XOSPATA [Suspect]
     Active Substance: GILTERITINIB
     Dosage: QD(ONCE DAILY)
     Route: 048
     Dates: start: 20231127
  6. Decitaibine [Concomitant]
     Indication: Chronic myelomonocytic leukaemia
     Route: 065
     Dates: start: 202308
  7. Decitaibine [Concomitant]
     Indication: Acute myeloid leukaemia
     Dosage: D1-D10
     Route: 065
     Dates: start: 20231003, end: 20231012
  8. Decitaibine [Concomitant]
     Dosage: D1-D10; (20 MG/M2
     Route: 065
     Dates: start: 20231116, end: 20231125
  9. FLUCONAZOLE [Concomitant]
     Active Substance: FLUCONAZOLE
     Indication: Fungal infection
     Dosage: QD (ONCE DAILY)
     Route: 065

REACTIONS (5)
  - Neutrophil count decreased [Not Recovered/Not Resolved]
  - Haemoglobin decreased [Not Recovered/Not Resolved]
  - Platelet count decreased [Not Recovered/Not Resolved]
  - Oesophageal candidiasis [Unknown]
  - Pathogen resistance [Unknown]

NARRATIVE: CASE EVENT DATE: 20231114
